FAERS Safety Report 10183618 (Version 1)
Quarter: 2014Q2

REPORT INFORMATION
  Report Type: Spontaneous
  Country: US (occurrence: US)
  Receive Date: 20140520
  Receipt Date: 20140520
  Transmission Date: 20141212
  Serious: Yes (Other)
  Sender: FDA-Public Use
  Company Number: US-BANPHARM-20142675

PATIENT
  Age: 63 Year
  Sex: Female
  Weight: 60.78 kg

DRUGS (2)
  1. ALEVE LIQUID GELS 220 MG [Suspect]
     Indication: HEADACHE
     Dosage: 1 DF, ONCE,
     Route: 048
     Dates: start: 201404, end: 201404
  2. NEXIUM [Concomitant]

REACTIONS (1)
  - Choking [Recovered/Resolved]
